FAERS Safety Report 8030383-5 (Version None)
Quarter: 2012Q1

REPORT INFORMATION
  Report Type: 
  Country: None (occurrence: None)
  Receive Date: 20120109
  Receipt Date: 20120109
  Transmission Date: 20120608
  Serious: No
  Sender: FDA-Public Use
  Company Number: None

PATIENT
  Sex: Female
  Weight: 16.329 kg

DRUGS (1)
  1. LORTAB [Suspect]
     Dosage: 4 ML
     Route: 048

REACTIONS (2)
  - NIGHTMARE [None]
  - GASTRIC DISORDER [None]
